FAERS Safety Report 11134356 (Version 3)
Quarter: 2015Q3

REPORT INFORMATION
  Report Type: Spontaneous
  Country: IT (occurrence: IT)
  Receive Date: 20150525
  Receipt Date: 20150701
  Transmission Date: 20151125
  Serious: Yes (Life-Threatening)
  Sender: FDA-Public Use
  Company Number: IT-ROCHE-1582383

PATIENT
  Age: 55 Year
  Sex: Male

DRUGS (3)
  1. TAXOL [Concomitant]
     Active Substance: PACLITAXEL
     Indication: LUNG ADENOCARCINOMA
     Dosage: 6MG/ML CONC. FOR SOLUTION FOR INFUSION 1X150VIAL.
     Route: 042
     Dates: start: 20150401, end: 20150509
  2. CARBOPLATIN. [Concomitant]
     Active Substance: CARBOPLATIN
     Indication: LUNG ADENOCARCINOMA
     Route: 042
     Dates: start: 20150401, end: 20150509
  3. AVASTIN [Suspect]
     Active Substance: BEVACIZUMAB
     Indication: NON-SMALL CELL LUNG CANCER
     Dosage: 400MG/16ML VIALS + 100MG/4ML VIALS
     Route: 065
     Dates: start: 20150401, end: 20150509

REACTIONS (4)
  - Constipation [Recovering/Resolving]
  - Diverticulitis [Recovering/Resolving]
  - Faecaloma [Recovering/Resolving]
  - Abdominal pain [Recovering/Resolving]

NARRATIVE: CASE EVENT DATE: 20150512
